FAERS Safety Report 21230972 (Version 3)
Quarter: 2023Q4

REPORT INFORMATION
  Report Type: Other
  Country: FR (occurrence: FR)
  Receive Date: 20220819
  Receipt Date: 20231005
  Transmission Date: 20240109
  Serious: Yes (Other)
  Sender: FDA-Public Use
  Company Number: FR-TOLMAR, INC.-22FR035993

PATIENT
  Age: 73 Year
  Sex: Male
  Weight: 79 kg

DRUGS (4)
  1. ELIGARD [Suspect]
     Active Substance: LEUPROLIDE ACETATE
     Indication: Prostate cancer metastatic
     Dosage: 22.5 MILLIGRAM, Q 3 MONTH
     Dates: start: 20220302
  2. ELIGARD [Suspect]
     Active Substance: LEUPROLIDE ACETATE
     Dosage: 22.5 MILLIGRAM, Q 3 MONTH
     Dates: start: 20220602
  3. RADIATION THERAPY [Concomitant]
     Active Substance: RADIATION THERAPY
     Indication: Prostate cancer metastatic
     Dosage: UNK
  4. CARTEOLOL [Concomitant]
     Active Substance: CARTEOLOL
     Indication: Glaucoma
     Dosage: UNK
     Dates: start: 2009

REACTIONS (2)
  - Glaucoma [Not Recovered/Not Resolved]
  - Hot flush [Not Recovered/Not Resolved]

NARRATIVE: CASE EVENT DATE: 20230801
